FAERS Safety Report 12123737 (Version 1)
Quarter: 2016Q1

REPORT INFORMATION
  Report Type: Spontaneous
  Country: US (occurrence: US)
  Receive Date: 20160227
  Receipt Date: 20160227
  Transmission Date: 20160526
  Serious: No
  Sender: FDA-Public Use
  Company Number: US-009507513-1602USA008801

PATIENT
  Sex: Male

DRUGS (1)
  1. BELSOMRA [Suspect]
     Active Substance: SUVOREXANT
     Dosage: 15 MG, ONCE EVERY NIGHT
     Route: 048
     Dates: start: 201602

REACTIONS (5)
  - Movement disorder [Unknown]
  - Abnormal dreams [Unknown]
  - Sleep talking [Unknown]
  - Glassy eyes [Unknown]
  - Eye movement disorder [Unknown]

NARRATIVE: CASE EVENT DATE: 201602
